FAERS Safety Report 5820904-2 (Version None)
Quarter: 2008Q3

REPORT INFORMATION
  Report Type: 
  Country: None (occurrence: None)
  Receive Date: 20080724
  Receipt Date: 20080220
  Transmission Date: 20090109
  Serious: No
  Sender: FDA-Public Use
  Company Number: US-BAYER-200810870BCC

PATIENT
  Age: 84 Year
  Sex: Male
  Weight: 66 kg

DRUGS (10)
  1. ALEVE GELCAPS (SMOOTH GELS) [Suspect]
     Indication: DRUG USE FOR UNKNOWN INDICATION
     Dosage: TOTAL DAILY DOSE: 440 MG  UNIT DOSE: 220 MG
     Route: 048
     Dates: start: 20080219, end: 20080219
  2. ALEVE GELCAPS (SMOOTH GELS) [Suspect]
     Dosage: AS USED: 440 MG  UNIT DOSE: 220 MG
     Route: 048
     Dates: start: 20080220
  3. LIPITOR [Concomitant]
  4. METHANAN [Concomitant]
  5. NIASPAN [Concomitant]
  6. SYNTHROID [Concomitant]
  7. FINASTERIDE [Concomitant]
  8. ZETIA [Concomitant]
  9. ATENOLOL [Concomitant]
  10. COZAAR [Concomitant]

REACTIONS (1)
  - ABDOMINAL PAIN UPPER [None]
